FAERS Safety Report 15894345 (Version 2)
Quarter: 2019Q1

REPORT INFORMATION
  Report Type: Spontaneous
  Country: FR (occurrence: FR)
  Receive Date: 20190131
  Receipt Date: 20190205
  Transmission Date: 20190417
  Serious: Yes (Hospitalization, Other)
  Sender: FDA-Public Use
  Company Number: FR-SA-2019SA021894

PATIENT
  Age: 34 Year
  Sex: Male
  Weight: 78 kg

DRUGS (2)
  1. PARACETAMOL [Suspect]
     Active Substance: ACETAMINOPHEN
     Indication: POISONING DELIBERATE
     Dosage: 30 G, TOTAL
     Route: 048
     Dates: start: 20180722, end: 20180722
  2. ZOLPIDEM TARTRATE. [Suspect]
     Active Substance: ZOLPIDEM TARTRATE
     Indication: POISONING DELIBERATE
     Dosage: 120 MG, TOTAL
     Route: 048
     Dates: start: 20180722, end: 20180722

REACTIONS (5)
  - Overdose [Unknown]
  - Liver injury [Recovered/Resolved]
  - Mydriasis [Recovered/Resolved]
  - Bradykinesia [Recovered/Resolved]
  - Tachycardia [Recovered/Resolved]

NARRATIVE: CASE EVENT DATE: 20180722
